FAERS Safety Report 17150742 (Version 1)
Quarter: 2019Q4

REPORT INFORMATION
  Report Type: Spontaneous
  Country: CN (occurrence: CN)
  Receive Date: 20191213
  Receipt Date: 20191213
  Transmission Date: 20200122
  Serious: Yes (Hospitalization)
  Sender: FDA-Public Use
  Company Number: CN-ASTRAZENECA-2019SF79979

PATIENT
  Age: 24216 Day
  Sex: Male
  Weight: 68 kg

DRUGS (2)
  1. ESOMEPRAZOLE SODIUM FOR INJECTION, USP 20 MG [Suspect]
     Active Substance: ESOMEPRAZOLE SODIUM
     Indication: PEPTIC ULCER HAEMORRHAGE
     Route: 041
     Dates: start: 20191121, end: 20191128
  2. SODIUM CHLORIDE INJECTION [Concomitant]
     Active Substance: SODIUM CHLORIDE
     Indication: VEHICLE SOLUTION USE
     Route: 041
     Dates: start: 20191121, end: 20191128

REACTIONS (2)
  - Gout [Unknown]
  - Pyrexia [Recovering/Resolving]

NARRATIVE: CASE EVENT DATE: 20191125
